FAERS Safety Report 5810043-9 (Version None)
Quarter: 2008Q3

REPORT INFORMATION
  Report Type: 
  Country: None (occurrence: None)
  Receive Date: 20080715
  Receipt Date: 20080711
  Transmission Date: 20090109
  Serious: Yes (Other)
  Sender: FDA-Public Use
  Company Number: A0737206A

PATIENT
  Sex: Female

DRUGS (3)
  1. COREG CR [Suspect]
     Indication: HYPERTENSION
     Route: 065
  2. ACE INHIBITOR [Concomitant]
  3. CARDIZEM [Concomitant]

REACTIONS (2)
  - HEART RATE DECREASED [None]
  - LOSS OF CONSCIOUSNESS [None]
